FAERS Safety Report 25120137 (Version 1)
Quarter: 2025Q1

REPORT INFORMATION
  Report Type: Spontaneous
  Country: DE (occurrence: DE)
  Receive Date: 20250325
  Receipt Date: 20250325
  Transmission Date: 20250408
  Serious: Yes (Other)
  Sender: PFIZER
  Company Number: DE-PROCTER+GAMBLE-PH25001133

PATIENT
  Age: 45 Year
  Sex: Female
  Weight: 65 kg

DRUGS (6)
  1. PANTOPRAZOLE [Suspect]
     Active Substance: PANTOPRAZOLE
     Route: 048
     Dates: start: 20250207
  2. VENLAFAXINE HYDROCHLORIDE [Suspect]
     Active Substance: VENLAFAXINE HYDROCHLORIDE
     Route: 048
     Dates: start: 20250207
  3. ACETAMINOPHEN\ASPIRIN\CAFFEINE [Suspect]
     Active Substance: ACETAMINOPHEN\ASPIRIN\CAFFEINE
     Dosage: 10 DOSAGE FORM, QD
     Route: 048
     Dates: start: 20250207, end: 20250207
  4. HERBALS [Suspect]
     Active Substance: HERBALS
     Dosage: 6 DOSAGE FORM, QD
     Route: 048
     Dates: start: 20250207, end: 20250207
  5. PIPAMPERONE [Suspect]
     Active Substance: PIPAMPERONE
     Dosage: 40 DOSAGE FORM, QD
     Route: 048
     Dates: start: 20250207, end: 20250207
  6. VALDOXAN [Suspect]
     Active Substance: AGOMELATINE
     Route: 048
     Dates: start: 20250207

REACTIONS (7)
  - Suicide attempt [Unknown]
  - Intentional self-injury [Unknown]
  - Somnolence [Recovering/Resolving]
  - Blood pressure systolic decreased [Recovered/Resolved]
  - Blood pressure diastolic decreased [Recovering/Resolving]
  - Oxygen saturation decreased [Recovering/Resolving]
  - Intentional overdose [Unknown]

NARRATIVE: CASE EVENT DATE: 20250207
